FAERS Safety Report 24580478 (Version 1)
Quarter: 2024Q4

REPORT INFORMATION
  Report Type: Spontaneous
  Country: US (occurrence: None)
  Receive Date: 20241104
  Receipt Date: 20241104
  Transmission Date: 20250115
  Serious: Yes (Hospitalization)
  Sender: Public
  Company Number: None

PATIENT
  Age: 41 Year
  Sex: Female

DRUGS (2)
  1. RINVOQ [Suspect]
     Active Substance: UPADACITINIB
     Indication: Colitis ulcerative
     Dosage: 30 MG DAILY ORAL
     Route: 048
  2. LIALDA [Concomitant]
     Active Substance: MESALAMINE

REACTIONS (2)
  - Viral infection [None]
  - Therapy interrupted [None]
